FAERS Safety Report 6983136-0 (Version None)
Quarter: 2010Q3

REPORT INFORMATION
  Report Type: 
  Country: None (occurrence: None)
  Receive Date: 20100910
  Receipt Date: 20100827
  Transmission Date: 20110219
  Serious: Yes (Disabling)
  Sender: FDA-Public Use
  Company Number: DSA_43629_2010

PATIENT
  Sex: Male

DRUGS (11)
  1. XENAZINE [Suspect]
     Indication: TIC
     Dosage: 12.5 MG, 12.5 MG, 12.5 MG  ORAL, (12.5 MG BID), (12.5 MG TID), (12.5 MG QD)
     Route: 048
     Dates: start: 20100101, end: 20100101
  2. XENAZINE [Suspect]
     Indication: TOURETTE'S DISORDER
     Dosage: 12.5 MG, 12.5 MG, 12.5 MG  ORAL, (12.5 MG BID), (12.5 MG TID), (12.5 MG QD)
     Route: 048
     Dates: start: 20100101, end: 20100101
  3. XENAZINE [Suspect]
     Indication: TIC
     Dosage: 12.5 MG, 12.5 MG, 12.5 MG  ORAL, (12.5 MG BID), (12.5 MG TID), (12.5 MG QD)
     Route: 048
     Dates: start: 20100501, end: 20100501
  4. XENAZINE [Suspect]
     Indication: TOURETTE'S DISORDER
     Dosage: 12.5 MG, 12.5 MG, 12.5 MG  ORAL, (12.5 MG BID), (12.5 MG TID), (12.5 MG QD)
     Route: 048
     Dates: start: 20100501, end: 20100501
  5. XENAZINE [Suspect]
     Indication: TIC
     Dosage: 12.5 MG, 12.5 MG, 12.5 MG  ORAL, (12.5 MG BID), (12.5 MG TID), (12.5 MG QD)
     Route: 048
     Dates: start: 20100501, end: 20100601
  6. XENAZINE [Suspect]
     Indication: TOURETTE'S DISORDER
     Dosage: 12.5 MG, 12.5 MG, 12.5 MG  ORAL, (12.5 MG BID), (12.5 MG TID), (12.5 MG QD)
     Route: 048
     Dates: start: 20100501, end: 20100601
  7. XENAZINE [Suspect]
     Indication: TIC
     Dosage: 12.5 MG, 12.5 MG, 12.5 MG  ORAL, (12.5 MG BID), (12.5 MG TID), (12.5 MG QD)
     Route: 048
     Dates: start: 20100601, end: 20100722
  8. XENAZINE [Suspect]
     Indication: TOURETTE'S DISORDER
     Dosage: 12.5 MG, 12.5 MG, 12.5 MG  ORAL, (12.5 MG BID), (12.5 MG TID), (12.5 MG QD)
     Route: 048
     Dates: start: 20100601, end: 20100722
  9. ENALAPRIL [Concomitant]
  10. TRICOR [Concomitant]
  11. ACTOPLUS MET [Concomitant]

REACTIONS (9)
  - BRUXISM [None]
  - COUGH [None]
  - DEPRESSION [None]
  - DIZZINESS [None]
  - DRUG INTOLERANCE [None]
  - HYPERHIDROSIS [None]
  - MUSCLE TIGHTNESS [None]
  - NO THERAPEUTIC RESPONSE [None]
  - PARADOXICAL DRUG REACTION [None]
